FAERS Safety Report 6940700-2 (Version None)
Quarter: 2010Q3

REPORT INFORMATION
  Report Type: 
  Country: None (occurrence: None)
  Receive Date: 20100825
  Receipt Date: 20100816
  Transmission Date: 20110219
  Serious: Yes (Hospitalization)
  Sender: FDA-Public Use
  Company Number: RU-ROCHE-721463

PATIENT
  Sex: Female
  Weight: 49 kg

DRUGS (3)
  1. PEGINTERFERON ALFA-2A [Suspect]
     Indication: HEPATITIS C
     Route: 058
     Dates: start: 20100119
  2. RIBAVIRIN [Suspect]
     Indication: HEPATITIS C
     Route: 048
     Dates: start: 20100119
  3. BLINDED TMC435 [Suspect]
     Indication: HEPATITIS C
     Route: 048
     Dates: start: 20100119

REACTIONS (2)
  - HAEMORRHAGIC ANAEMIA [None]
  - METRORRHAGIA [None]
